FAERS Safety Report 9784539 (Version 2)
Quarter: 2013Q4

REPORT INFORMATION
  Report Type: Spontaneous
  Country: US (occurrence: US)
  Receive Date: 20131226
  Receipt Date: 20131227
  Transmission Date: 20140711
  Serious: Yes (Hospitalization, Other)
  Sender: FDA-Public Use
  Company Number: US-ABBVIE-13P-163-1181779-00

PATIENT
  Sex: Female

DRUGS (2)
  1. DEPAKOTE [Suspect]
     Indication: CONVULSION
     Dates: start: 201209, end: 201211
  2. DEPAKOTE [Suspect]
     Indication: BIPOLAR DISORDER

REACTIONS (11)
  - Renal failure acute [Unknown]
  - Necrosis [Unknown]
  - Disability [Unknown]
  - Anhedonia [Unknown]
  - Tension [Unknown]
  - Physical disability [Unknown]
  - Mental disability [Unknown]
  - Pain [Unknown]
  - Acute hepatic failure [Unknown]
  - Loss of employment [Unknown]
  - Economic problem [Unknown]
